FAERS Safety Report 6561947-3 (Version None)
Quarter: 2010Q1

REPORT INFORMATION
  Report Type: 
  Country: None (occurrence: None)
  Receive Date: 20100130
  Receipt Date: 20091111
  Transmission Date: 20100710
  Serious: No
  Sender: FDA-Public Use
  Company Number: US-ABBOTT-09P-163-0594979-00

PATIENT
  Sex: Female
  Weight: 124.85 kg

DRUGS (1)
  1. HUMIRA [Suspect]
     Indication: RHEUMATOID ARTHRITIS
     Dates: start: 20061121, end: 20090902

REACTIONS (3)
  - DYSPNOEA [None]
  - PARAESTHESIA [None]
  - SWELLING FACE [None]
